FAERS Safety Report 7930520-4 (Version None)
Quarter: 2011Q4

REPORT INFORMATION
  Report Type: 
  Country: None (occurrence: None)
  Receive Date: 20111121
  Receipt Date: 20111107
  Transmission Date: 20120403
  Serious: Yes (Other)
  Sender: FDA-Public Use
  Company Number: US-ROCHE-1012248

PATIENT

DRUGS (1)
  1. HERCEPTIN [Suspect]
     Indication: NEOPLASM

REACTIONS (3)
  - TUMOUR PAIN [None]
  - PAIN [None]
  - RESPIRATORY DISORDER [None]
